FAERS Safety Report 18533594 (Version 1)
Quarter: 2020Q4

REPORT INFORMATION
  Report Type: Other
  Country: FR (occurrence: FR)
  Receive Date: 20201123
  Receipt Date: 20201123
  Transmission Date: 20210114
  Serious: Yes (Other)
  Sender: FDA-Public Use
  Company Number: FR-CHANGZHOU PHARMACEUTICAL FACTORY-2096175

PATIENT
  Age: 49 Year
  Sex: Female

DRUGS (2)
  1. ROSUVASTATIN CALCIUM. [Suspect]
     Active Substance: ROSUVASTATIN CALCIUM
     Indication: HYPERCHOLESTEROLAEMIA
     Route: 065
  2. CHLORMADINONE [Concomitant]
     Active Substance: CHLORMADINONE
     Route: 065

REACTIONS (1)
  - Ulnar tunnel syndrome [Recovered/Resolved]
